FAERS Safety Report 6091100-1 (Version None)
Quarter: 2009Q1

REPORT INFORMATION
  Report Type: 
  Country: None (occurrence: None)
  Receive Date: 20090225
  Receipt Date: 20090218
  Transmission Date: 20090719
  Serious: Yes (Hospitalization, Other)
  Sender: FDA-Public Use
  Company Number: DE-JNJFOC-20090204522

PATIENT
  Sex: Female

DRUGS (9)
  1. RISPERDAL CONSTA [Suspect]
     Indication: SCHIZOPHRENIA
     Route: 030
  2. ENALAPRIL MALEATE [Concomitant]
     Route: 065
  3. METOPROLOL [Concomitant]
     Route: 065
  4. TOREM [Concomitant]
     Route: 065
  5. NEXIUM [Concomitant]
     Route: 065
  6. FOLIC ACID [Concomitant]
     Indication: FOLATE DEFICIENCY
     Route: 065
  7. ACTRAPHANE [Concomitant]
     Indication: DIABETES MELLITUS
     Route: 065
  8. VITAMIN B-12 [Concomitant]
     Route: 065
  9. INSULIN [Concomitant]
     Indication: DIABETES MELLITUS
     Route: 065

REACTIONS (3)
  - NEUROLEPTIC MALIGNANT SYNDROME [None]
  - PARAPARESIS [None]
  - SOMNOLENCE [None]
